FAERS Safety Report 9343643 (Version 4)
Quarter: 2013Q4

REPORT INFORMATION
  Report Type: Spontaneous
  Country: GB (occurrence: None)
  Receive Date: 20130610
  Receipt Date: 20131101
  Transmission Date: 20140711
  Serious: Yes (Hospitalization, Other)
  Sender: FDA-Public Use
  Company Number: AUR-APL-2013-04659

PATIENT
  Age: 10 Day
  Sex: 0

DRUGS (1)
  1. OLANZAPINE [Suspect]
     Indication: PRODUCT USED FOR UNKNOWN INDICATION
     Route: 064

REACTIONS (4)
  - Maternal drugs affecting foetus [None]
  - Feeding disorder neonatal [None]
  - Lethargy [None]
  - Drug withdrawal syndrome neonatal [None]
